FAERS Safety Report 13861163 (Version 4)
Quarter: 2018Q4

REPORT INFORMATION
  Report Type: Spontaneous
  Country: IT (occurrence: IT)
  Receive Date: 20170811
  Receipt Date: 20181214
  Transmission Date: 20190204
  Serious: Yes (Hospitalization, Other)
  Sender: FDA-Public Use
  Company Number: IT-PFIZER INC-2017340029

PATIENT
  Age: 76 Year
  Sex: Male

DRUGS (4)
  1. TRIATEC (RAMIPRIL) [Suspect]
     Active Substance: RAMIPRIL
     Indication: HYPERTENSION
     Dosage: 5 MG, DAILY
     Route: 048
     Dates: start: 20170101
  2. LASIX [Suspect]
     Active Substance: FUROSEMIDE
     Indication: HYPERTENSION
     Dosage: 25 MG, DAILY
     Route: 048
     Dates: start: 20170101
  3. DILZENE [Suspect]
     Active Substance: DILTIAZEM HYDROCHLORIDE
     Indication: HYPERTENSION
     Dosage: 180 MG, DAILY (3 DF DAILY)
     Route: 048
     Dates: start: 20170101
  4. COUMADIN [Concomitant]
     Active Substance: WARFARIN SODIUM
     Dosage: UNK

REACTIONS (5)
  - Clavicle fracture [Unknown]
  - Orthostatic hypotension [Unknown]
  - Syncope [Unknown]
  - Traumatic intracranial haemorrhage [Unknown]
  - Head injury [Unknown]

NARRATIVE: CASE EVENT DATE: 20170326
